FAERS Safety Report 13513432 (Version 1)
Quarter: 2017Q2

REPORT INFORMATION
  Report Type: Spontaneous
  Country: GB (occurrence: GB)
  Receive Date: 20170504
  Receipt Date: 20170504
  Transmission Date: 20170830
  Serious: Yes (Other)
  Sender: FDA-Public Use
  Company Number: GB-PFIZER INC-2017189200

PATIENT
  Age: 74 Year
  Sex: Male
  Weight: 102.51 kg

DRUGS (1)
  1. DOXAZOSIN MESILATE [Suspect]
     Active Substance: DOXAZOSIN MESYLATE
     Dosage: UNK

REACTIONS (9)
  - Hypertension [Unknown]
  - Nasal congestion [Unknown]
  - Choking sensation [Unknown]
  - Abdominal discomfort [Unknown]
  - Dry mouth [Unknown]
  - Anxiety [Unknown]
  - Agitation [Unknown]
  - Joint swelling [Unknown]
  - Urinary tract disorder [Unknown]

NARRATIVE: CASE EVENT DATE: 20170314
